FAERS Safety Report 17718941 (Version 1)
Quarter: 2020Q2

REPORT INFORMATION
  Report Type: Report from Study
  Country: None (occurrence: US)
  Receive Date: 20200428
  Receipt Date: 20200428
  Transmission Date: 20200714
  Serious: Yes (Other)
  Sender: FDA-Public Use
  Company Number: US-ABBVIE-20K-163-3378284-00

PATIENT
  Sex: Male

DRUGS (6)
  1. XOSPATA [Concomitant]
     Active Substance: GILTERITINIB
     Indication: MYELODYSPLASTIC SYNDROME
     Route: 048
     Dates: start: 20191228
  2. DECITABINE. [Concomitant]
     Active Substance: DECITABINE
     Indication: PRODUCT USED FOR UNKNOWN INDICATION
  3. XOSPATA [Concomitant]
     Active Substance: GILTERITINIB
     Indication: ACUTE MYELOID LEUKAEMIA
  4. VIDAZA [Concomitant]
     Active Substance: AZACITIDINE
     Indication: PRODUCT USED FOR UNKNOWN INDICATION
  5. VENCLEXTA [Suspect]
     Active Substance: VENETOCLAX
     Indication: MYELODYSPLASTIC SYNDROME
     Route: 048
     Dates: start: 20190528
  6. VENCLEXTA [Suspect]
     Active Substance: VENETOCLAX
     Indication: ACUTE MYELOID LEUKAEMIA

REACTIONS (9)
  - Platelet count decreased [Unknown]
  - Muscle spasms [Recovering/Resolving]
  - Gastrooesophageal reflux disease [Recovering/Resolving]
  - Spinal cord compression [Unknown]
  - Constipation [Unknown]
  - Mucosal inflammation [Recovering/Resolving]
  - Back pain [Unknown]
  - Seasonal allergy [Recovering/Resolving]
  - Vitreous floaters [Unknown]

NARRATIVE: CASE EVENT DATE: 2020
